FAERS Safety Report 15363225 (Version 1)
Quarter: 2018Q3

REPORT INFORMATION
  Report Type: Spontaneous
  Country: US (occurrence: US)
  Receive Date: 20180907
  Receipt Date: 20180907
  Transmission Date: 20181010
  Serious: No
  Sender: FDA-Public Use
  Company Number: US-TEVA-2018-US-952393

PATIENT
  Sex: Male

DRUGS (9)
  1. ZOLPIDEM [Concomitant]
     Active Substance: ZOLPIDEM\ZOLPIDEM TARTRATE
  2. HYDROCODONE BITARTRATE AND ACETAMINOPHEN [Concomitant]
     Active Substance: ACETAMINOPHEN\HYDROCODONE BITARTRATE
  3. ATORVASTATIN [Concomitant]
     Active Substance: ATORVASTATIN
  4. CALCIFEROL [Concomitant]
     Active Substance: ERGOCALCIFEROL
  5. COPAXONE [Suspect]
     Active Substance: GLATIRAMER ACETATE
     Indication: ACQUIRED PYRIMIDINE METABOLISM DISORDER
  6. CARISOPRODOL. [Concomitant]
     Active Substance: CARISOPRODOL
  7. CARISOPRODOL. [Concomitant]
     Active Substance: CARISOPRODOL
  8. ALPRAZOLAM. [Concomitant]
     Active Substance: ALPRAZOLAM
  9. COPAXONE [Suspect]
     Active Substance: GLATIRAMER ACETATE
     Indication: PURINE METABOLISM DISORDER
     Dosage: LIQUID
     Dates: start: 20170315

REACTIONS (4)
  - Injection site reaction [Unknown]
  - Body temperature increased [Unknown]
  - Anxiety [Unknown]
  - Product use in unapproved indication [Unknown]
